FAERS Safety Report 24194634 (Version 1)
Quarter: 2024Q3

REPORT INFORMATION
  Report Type: Spontaneous
  Country: US (occurrence: US)
  Receive Date: 20240809
  Receipt Date: 20240809
  Transmission Date: 20241017
  Serious: Yes (Other)
  Sender: FRESENIUS KABI
  Company Number: US-FreseniusKabi-FK202412166

PATIENT
  Age: 20 Year
  Sex: Male

DRUGS (3)
  1. HEPARIN SODIUM [Suspect]
     Active Substance: HEPARIN SODIUM
     Indication: Jugular vein thrombosis
     Dosage: FORM: INFUSION
  2. ALTEPLASE [Suspect]
     Active Substance: ALTEPLASE
     Indication: Fibrin degradation products
  3. DORNASE ALFA [Suspect]
     Active Substance: DORNASE ALFA
     Indication: Fibrin degradation products

REACTIONS (2)
  - Haemothorax [Recovering/Resolving]
  - Drug interaction [Unknown]
